FAERS Safety Report 5208989-8 (Version None)
Quarter: 2007Q1

REPORT INFORMATION
  Report Type: 
  Country: None (occurrence: None)
  Receive Date: 20070116
  Receipt Date: 20070108
  Transmission Date: 20070707
  Serious: Yes (Hospitalization)
  Sender: FDA-Public Use
  Company Number: FR-GLAXOSMITHKLINE-B0453872A

PATIENT
  Age: 26 Year
  Sex: Female
  Weight: 50 kg

DRUGS (5)
  1. AUGMENTIN '125' [Suspect]
     Route: 048
     Dates: start: 20061205, end: 20061211
  2. ACUPAN [Concomitant]
     Dosage: 1INJ TWICE PER DAY
     Route: 030
     Dates: start: 20060201, end: 20061211
  3. DEPAKENE [Concomitant]
     Dosage: 500MG TWICE PER DAY
     Route: 048
     Dates: start: 20060201, end: 20061211
  4. AMITRIPTYLINE HCL [Concomitant]
     Dosage: 40DROP PER DAY
     Route: 048
     Dates: start: 20041201, end: 20061211
  5. IMOVANE [Concomitant]
     Dosage: 2UNIT SINGLE DOSE
     Route: 048
     Dates: start: 20060901

REACTIONS (8)
  - ALANINE AMINOTRANSFERASE INCREASED [None]
  - ASPARTATE AMINOTRANSFERASE INCREASED [None]
  - COAGULATION FACTOR DECREASED [None]
  - GAMMA-GLUTAMYLTRANSFERASE INCREASED [None]
  - GENERAL PHYSICAL HEALTH DETERIORATION [None]
  - HEPATOCELLULAR DAMAGE [None]
  - PROTHROMBIN LEVEL DECREASED [None]
  - SERUM FERRITIN DECREASED [None]
